FAERS Safety Report 8893823 (Version 1)
Quarter: 2012Q4

REPORT INFORMATION
  Report Type: 
  Country: US (occurrence: US)
  Receive Date: 20121107
  Receipt Date: 20121107
  Transmission Date: 20130627
  Serious: No
  Sender: FDA-Public Use
  Company Number: US-AMGEN-USASP2012033013

PATIENT
  Age: 52 Year
  Sex: Female
  Weight: 122 kg

DRUGS (9)
  1. ENBREL [Suspect]
     Indication: PRODUCT USED FOR UNKNOWN INDICATION
     Dosage: 50 mg, qwk
     Route: 058
     Dates: end: 201205
  2. COREG CR [Concomitant]
     Dosage: 20 mg, UNK
  3. PREDNISONE [Concomitant]
     Dosage: 1 mg, UNK
  4. ZYRTEC [Concomitant]
     Dosage: 5 mg, UNK
  5. LIPITOR [Concomitant]
     Dosage: 20 mg, UNK
  6. PROVENTIL                          /00139501/ [Concomitant]
     Dosage: 90 mug, UNK
  7. PLAVIX [Concomitant]
     Dosage: 75 mg, UNK
  8. ZETIA [Concomitant]
     Dosage: 10 mg, UNK
  9. MULTIVITAMINS, PLAIN [Concomitant]
     Dosage: UNK

REACTIONS (7)
  - Cough [Unknown]
  - Wheezing [Unknown]
  - Dyspnoea [Unknown]
  - Asthma [Unknown]
  - Nasal congestion [Unknown]
  - Nausea [Unknown]
  - Vomiting [Unknown]
